FAERS Safety Report 10505082 (Version 1)
Quarter: 2014Q3

REPORT INFORMATION
  Report Type: Spontaneous
  Country: US (occurrence: None)
  Receive Date: 20140915
  Receipt Date: 20140915
  Transmission Date: 20150326
  Serious: Yes (Other)
  Sender: FDA-Public Use
  Company Number: PHEH2013US026246

PATIENT
  Sex: Female

DRUGS (3)
  1. SPIRONOLACTONE (SPIRONOLACTONE) [Concomitant]
     Active Substance: SPIRONOLACTONE
  2. COREG [Concomitant]
     Active Substance: CARVEDILOL
  3. DIOVAN [Suspect]
     Active Substance: VALSARTAN
     Route: 048

REACTIONS (3)
  - Expired product administered [None]
  - Anxiety [None]
  - Cardiac failure [None]
